FAERS Safety Report 4578158-3 (Version None)
Quarter: 2005Q1

REPORT INFORMATION
  Report Type: 
  Country: None (occurrence: None)
  Receive Date: 20050202
  Receipt Date: 20050202
  Transmission Date: 20050727
  Serious: Yes (Hospitalization)
  Sender: FDA-Public Use
  Company Number: None

PATIENT
  Age: 77 Year
  Sex: Male
  Weight: 61 kg

DRUGS (4)
  1. AMIODARONE HCL [Suspect]
     Indication: CARDIAC FAILURE CONGESTIVE
     Dosage: 400 MG PO Q DAILY
     Route: 048
  2. LASIX [Concomitant]
  3. LIPITOR [Concomitant]
  4. PROSCAR [Concomitant]

REACTIONS (2)
  - DIZZINESS [None]
  - PULMONARY FIBROSIS [None]
